FAERS Safety Report 4320400-8 (Version None)
Quarter: 2004Q1

REPORT INFORMATION
  Report Type: 
  Country: None (occurrence: None)
  Receive Date: 20040317
  Receipt Date: 20040309
  Transmission Date: 20041129
  Serious: Yes (Hospitalization)
  Sender: FDA-Public Use
  Company Number: 2004203149JP

PATIENT
  Sex: Female

DRUGS (4)
  1. XALATAN [Suspect]
     Indication: GLAUCOMA
     Dosage: 1 GTT, QD, OPHTHALMIC
     Route: 047
  2. NIFLAN (PRANOPROFEN) [Suspect]
     Dosage: OPHTHALMIC
     Route: 047
  3. TIMOLOL MALEATE [Suspect]
     Dosage: OPHTHALMIC
     Route: 047
  4. AZOPT [Suspect]
     Dosage: OPHTHALMIC
     Route: 047

REACTIONS (1)
  - CORNEAL EPITHELIUM DISORDER [None]
